FAERS Safety Report 9339321 (Version 1)
Quarter: 2013Q2

REPORT INFORMATION
  Report Type: Spontaneous
  Country: CO (occurrence: CO)
  Receive Date: 20130610
  Receipt Date: 20130610
  Transmission Date: 20140414
  Serious: Yes (Hospitalization)
  Sender: FDA-Public Use
  Company Number: CO-UCBSA-087699

PATIENT
  Age: 63 Year
  Sex: Female

DRUGS (4)
  1. CIMZIA [Suspect]
     Indication: RHEUMATOID ARTHRITIS
     Route: 058
     Dates: start: 20121008
  2. ACETAMINOPHEN [Concomitant]
  3. ENOXAPARINE [Concomitant]
  4. TIROXINA [Concomitant]

REACTIONS (1)
  - Pulmonary embolism [Unknown]
